FAERS Safety Report 11039372 (Version 3)
Quarter: 2015Q3

REPORT INFORMATION
  Report Type: Spontaneous
  Country: IT (occurrence: IT)
  Receive Date: 20150416
  Receipt Date: 20150810
  Transmission Date: 20151125
  Serious: Yes (Hospitalization)
  Sender: FDA-Public Use
  Company Number: IT-OTSUKA-US-2015-11544

PATIENT
  Age: 40 Year
  Sex: Male

DRUGS (2)
  1. ABILIFY MAINTENA [Suspect]
     Active Substance: ARIPIPRAZOLE
     Indication: DYSPHORIA
     Dosage: UNK UNK, QM
     Route: 030
     Dates: start: 20150126
  2. ABILIFY MAINTENA [Suspect]
     Active Substance: ARIPIPRAZOLE
     Indication: MENTAL DISORDER

REACTIONS (5)
  - Flight of ideas [Unknown]
  - Dysphoria [Unknown]
  - Off label use [Unknown]
  - Drug ineffective [Unknown]
  - Psychotic disorder [Unknown]

NARRATIVE: CASE EVENT DATE: 20150126
